FAERS Safety Report 25949317 (Version 1)
Quarter: 2025Q4

REPORT INFORMATION
  Report Type: Spontaneous
  Country: CN (occurrence: CN)
  Receive Date: 20251022
  Receipt Date: 20251022
  Transmission Date: 20260118
  Serious: Yes (Hospitalization)
  Sender: GLAXOSMITHKLINE
  Company Number: CN-GSK-CN2025CHI130837

PATIENT
  Age: 51 Year
  Sex: Female
  Weight: 52 kg

DRUGS (3)
  1. LAMOTRIGINE [Suspect]
     Active Substance: LAMOTRIGINE
     Indication: Epilepsy
     Dosage: 50 MG, QD
  2. LEVETIRACETAM [Suspect]
     Active Substance: LEVETIRACETAM
     Indication: Product used for unknown indication
     Dosage: 0.5 G, BID
  3. VALPROATE SODIUM [Suspect]
     Active Substance: VALPROATE SODIUM
     Indication: Product used for unknown indication
     Dosage: 0.5 G, BID

REACTIONS (11)
  - Rash [Recovering/Resolving]
  - Rash pruritic [Recovering/Resolving]
  - Pain [Recovering/Resolving]
  - Rash maculo-papular [Recovering/Resolving]
  - Feeling hot [Recovered/Resolved]
  - Erythema [Recovering/Resolving]
  - Skin swelling [Recovering/Resolving]
  - Cheilitis [Recovering/Resolving]
  - Drug eruption [Recovering/Resolving]
  - Rash papular [Recovering/Resolving]
  - Flushing [Recovering/Resolving]

NARRATIVE: CASE EVENT DATE: 20250925
